FAERS Safety Report 24044539 (Version 1)
Quarter: 2024Q3

REPORT INFORMATION
  Report Type: Spontaneous
  Country: US (occurrence: US)
  Receive Date: 20240703
  Receipt Date: 20240703
  Transmission Date: 20241016
  Serious: Yes (Hospitalization)
  Sender: NOVITIUM PHARMA
  Company Number: US-NOVITIUMPHARMA-2024USNVP01122

PATIENT
  Age: 70 Year
  Sex: Male

DRUGS (3)
  1. PREDNISONE [Suspect]
     Active Substance: PREDNISONE
     Indication: Organising pneumonia
  2. PREDNISONE [Suspect]
     Active Substance: PREDNISONE
     Dosage: LESS THAN 20 MG
  3. PREDNISONE [Suspect]
     Active Substance: PREDNISONE
     Dosage: MAINTAINED

REACTIONS (2)
  - Rebound effect [Unknown]
  - VEXAS syndrome [Unknown]
